FAERS Safety Report 6104270-3 (Version None)
Quarter: 2009Q1

REPORT INFORMATION
  Report Type: 
  Country: None (occurrence: None)
  Receive Date: 20090305
  Receipt Date: 20090227
  Transmission Date: 20090719
  Serious: Yes (Hospitalization)
  Sender: FDA-Public Use
  Company Number: JP-ALLERGAN-0901079US

PATIENT
  Sex: Male
  Weight: 69 kg

DRUGS (7)
  1. ALESION TABLET [Suspect]
     Indication: URTICARIA
     Dosage: 20 MG, QD
     Route: 048
     Dates: start: 20090115, end: 20090122
  2. WYSTAL [Suspect]
     Indication: APPENDICITIS
     Dosage: 2 G, QD
     Route: 042
     Dates: start: 20090107, end: 20090119
  3. DAI-KENCHU-TO [Concomitant]
     Indication: INTESTINAL OBSTRUCTION
     Dosage: 7.5 G, QD
     Route: 048
     Dates: start: 20090120
  4. GASTER [Concomitant]
     Indication: PROPHYLAXIS
     Dosage: 40 MG, QD
     Route: 042
     Dates: start: 20090107, end: 20090115
  5. GASMOTIN [Concomitant]
     Indication: INTESTINAL OBSTRUCTION
     Dosage: 15 MG, QD
     Route: 048
     Dates: start: 20090120, end: 20090122
  6. PANTOL [Concomitant]
     Indication: INTESTINAL OBSTRUCTION
     Dosage: 1500 MG, QD
     Route: 042
     Dates: start: 20090108, end: 20090121
  7. PROSTARMON F [Concomitant]
     Indication: INTESTINAL OBSTRUCTION
     Dosage: 200 DF, QD
     Route: 042
     Dates: start: 20090109, end: 20090116

REACTIONS (1)
  - PLATELET COUNT DECREASED [None]
